FAERS Safety Report 25989718 (Version 2)
Quarter: 2025Q4

REPORT INFORMATION
  Report Type: Spontaneous
  Country: CN (occurrence: CN)
  Receive Date: 20251103
  Receipt Date: 20251110
  Transmission Date: 20260118
  Serious: Yes (Life-Threatening, Hospitalization, Other)
  Sender: PFIZER
  Company Number: CN-MLMSERVICE-20251022-PI685939-00270-1

PATIENT
  Age: 61 Year
  Sex: Male
  Weight: 80 kg

DRUGS (2)
  1. METHYLPREDNISOLONE SODIUM SUCCINATE [Suspect]
     Active Substance: METHYLPREDNISOLONE SODIUM SUCCINATE
     Indication: Thymoma
     Dosage: 500 MG FOR PULSE THERAPY, WHICH WAS GRADUALLY TAPERED
     Route: 042
  2. PYRIDOSTIGMINE [Concomitant]
     Active Substance: PYRIDOSTIGMINE
     Indication: Thymoma
     Dosage: 60 MG, FREQ: 8 H

REACTIONS (2)
  - Myasthenia gravis crisis [Recovering/Resolving]
  - Respiratory distress [Recovering/Resolving]
